FAERS Safety Report 6651378-X (Version None)
Quarter: 2010Q1

REPORT INFORMATION
  Report Type: 
  Country: None (occurrence: None)
  Receive Date: 20100325
  Receipt Date: 20100319
  Transmission Date: 20100710
  Serious: Yes (Death, Hospitalization)
  Sender: FDA-Public Use
  Company Number: BR-ROCHE-511216

PATIENT
  Sex: Female
  Weight: 53.7 kg

DRUGS (2)
  1. BEVACIZUMAB [Suspect]
     Dosage: DOSAGE FORM REPORTED AS 10 MG/KG.
     Route: 042
     Dates: start: 20061226, end: 20070802
  2. GEMCITABINE HCL [Concomitant]
     Dosage: FREQUENCY REPORTED: D3 AND DIE; TREATMENT COMPLETED
     Route: 042
     Dates: start: 20061226

REACTIONS (1)
  - HEPATIC FAILURE [None]
